FAERS Safety Report 8323424-9 (Version None)
Quarter: 2012Q2

REPORT INFORMATION
  Report Type: 
  Country: None (occurrence: None)
  Receive Date: 20120430
  Receipt Date: 20120406
  Transmission Date: 20120825
  Serious: Yes (Death, Other)
  Sender: FDA-Public Use
  Company Number: PHHY2012JP021931

PATIENT
  Age: 62 Year
  Sex: Male
  Weight: 66 kg

DRUGS (11)
  1. LIDOCAINE [Concomitant]
     Dosage: 1 %, UNK
  2. ACYCLOVIR [Concomitant]
     Dosage: 1000 MG/DAY FOR 5 WEEKS
  3. NEORAL [Suspect]
     Indication: CORD BLOOD TRANSPLANT THERAPY
     Dosage: 3 MG/KG, ON DAY -3 WITH TARGET SERUM CONCENTRATION OF 250 TO 450 NG/ML
  4. FLUDARABINE PHOSPHATE [Concomitant]
     Dosage: 40 MG/M2, FOR 5 DAYS (DAY -6 TO DAY -2)
  5. GRANULOCYTE COLONY STIMULATING FACTOR [Concomitant]
     Dosage: 300 MG/M2, UNK
  6. MYCOPHENOLATE MOFETIL [Suspect]
     Indication: CORD BLOOD TRANSPLANT THERAPY
     Dosage: 30 MG/KG (DIVIDED INTO 2 OR 3 DOSES) ON DAY - 3
  7. ACYCLOVIR [Concomitant]
     Dosage: 200 MG/DAY
  8. HYDROCORTISONE [Concomitant]
     Indication: PREMEDICATION
     Dosage: UNK UKN, UNK
  9. HYDROXYZINE [Concomitant]
  10. IRRADIATION [Concomitant]
     Dosage: 3 GY, UNK
  11. FLUOROQUINOLONES [Concomitant]
     Dosage: UNK UKN, UNK

REACTIONS (2)
  - BRONCHOPULMONARY ASPERGILLOSIS [None]
  - ACUTE GRAFT VERSUS HOST DISEASE IN SKIN [None]
